FAERS Safety Report 8587171-0 (Version None)
Quarter: 2012Q3

REPORT INFORMATION
  Report Type: 
  Country: None (occurrence: None)
  Receive Date: 20120810
  Receipt Date: 20111116
  Transmission Date: 20120928
  Serious: No
  Sender: FDA-Public Use
  Company Number: US-ASTRAZENECA-2008UW18490

PATIENT
  Age: 73 Year
  Sex: Female

DRUGS (4)
  1. ARIMIDEX [Suspect]
     Indication: BREAST CANCER
     Route: 048
     Dates: start: 20070101, end: 20111001
  2. CRESTOR [Suspect]
     Indication: BLOOD CHOLESTEROL
     Route: 048
  3. ARIMIDEX [Suspect]
     Route: 048
     Dates: start: 20111001
  4. ATENOLOL [Concomitant]
     Indication: HYPERTENSION

REACTIONS (5)
  - NASOPHARYNGITIS [None]
  - PAIN [None]
  - ARTHRALGIA [None]
  - MUSCULOSKELETAL STIFFNESS [None]
  - ARTHRITIS [None]
